FAERS Safety Report 21913157 (Version 1)
Quarter: 2023Q1

REPORT INFORMATION
  Report Type: Spontaneous
  Country: US (occurrence: US)
  Receive Date: 20230125
  Receipt Date: 20230125
  Transmission Date: 20230418
  Serious: No
  Sender: FDA-Public Use
  Company Number: US-ALLERGAN-2206962US

PATIENT
  Sex: Female

DRUGS (4)
  1. BOTOX [Suspect]
     Active Substance: ONABOTULINUMTOXINA
     Indication: Headache
     Dosage: UNK UNK, SINGLE
  2. BOTOX [Suspect]
     Active Substance: ONABOTULINUMTOXINA
     Indication: Electric shock sensation
  3. LYRICA [Concomitant]
     Active Substance: PREGABALIN
     Indication: Headache
     Dosage: UNK
     Dates: start: 2016, end: 2019
  4. LYRICA [Concomitant]
     Active Substance: PREGABALIN
     Indication: Electric shock sensation

REACTIONS (4)
  - Headache [Unknown]
  - Induration [Unknown]
  - Product use in unapproved indication [Unknown]
  - Drug ineffective [Unknown]
